FAERS Safety Report 5676959-1 (Version None)
Quarter: 2008Q1

REPORT INFORMATION
  Report Type: 
  Country: None (occurrence: None)
  Receive Date: 20080324
  Receipt Date: 20080313
  Transmission Date: 20080703
  Serious: Yes (Other)
  Sender: FDA-Public Use
  Company Number: US-ROCHE-553193

PATIENT
  Age: 67 Year
  Sex: Male

DRUGS (2)
  1. XELODA [Suspect]
     Route: 048
     Dates: start: 20080101
  2. XELODA [Suspect]
     Dosage: DOSAGE RECEIVED DURING THE SUMMER.
     Route: 048
     Dates: start: 20070101

REACTIONS (9)
  - AGEUSIA [None]
  - CHEILITIS [None]
  - EYE DISORDER [None]
  - GASTRIC DISORDER [None]
  - HEPATIC LESION [None]
  - PAIN OF SKIN [None]
  - PENILE EXFOLIATION [None]
  - SKIN DISORDER [None]
  - SKIN EXFOLIATION [None]
